FAERS Safety Report 16095731 (Version 1)
Quarter: 2019Q1

REPORT INFORMATION
  Report Type: Report from Study
  Country: US (occurrence: US)
  Receive Date: 20190320
  Receipt Date: 20190320
  Transmission Date: 20190418
  Serious: Yes (Hospitalization)
  Sender: FDA-Public Use
  Company Number: US-ROCHE-2286423

PATIENT
  Sex: Male
  Weight: 87.62 kg

DRUGS (14)
  1. SERTRALINE HCL [Concomitant]
     Active Substance: SERTRALINE HYDROCHLORIDE
     Dosage: 100 MG TAB, TAKE 1.5 TAB
     Route: 048
  2. METYRAPONE [Concomitant]
     Active Substance: METYRAPONE
     Dosage: ONCE
     Route: 065
  3. NUTROPIN AQ [Suspect]
     Active Substance: SOMATROPIN
     Indication: GROWTH HORMONE DEFICIENCY
     Route: 058
  4. TESTOSTERONE. [Concomitant]
     Active Substance: TESTOSTERONE
     Dosage: 200 MG/ML
     Route: 030
  5. LAMOTRIGINE. [Concomitant]
     Active Substance: LAMOTRIGINE
     Dosage: 200 MG TAB 2 TAB TWICE A DAY
     Route: 048
  6. VIMPAT [Concomitant]
     Active Substance: LACOSAMIDE
     Route: 048
  7. HYDROCORTISONE. [Concomitant]
     Active Substance: HYDROCORTISONE
     Route: 048
  8. CABERGOLINE. [Concomitant]
     Active Substance: CABERGOLINE
     Dosage: 0.5 TABLET, TAKE 1 TABLET
     Route: 048
  9. BROMOCRIPTINE [Concomitant]
     Active Substance: BROMOCRIPTINE
     Dosage: BEDTIME
     Route: 048
  10. NOVOFINE [Concomitant]
     Active Substance: INSULIN NOS
     Dosage: 30 GX 8 MM
     Route: 058
  11. MONTELUKAST [Concomitant]
     Active Substance: MONTELUKAST SODIUM
     Dosage: IN EVENING
     Route: 048
  12. NUTROPIN AQ [Suspect]
     Active Substance: SOMATROPIN
     Route: 058
  13. LEVOTHYROXINE SODIUM. [Concomitant]
     Active Substance: LEVOTHYROXINE SODIUM
     Dosage: MORNING EMPTY STOMACH
     Route: 048
  14. DULOXETINE. [Concomitant]
     Active Substance: DULOXETINE
     Dosage: 2 CAPSULE ONCE A DAY
     Route: 048

REACTIONS (3)
  - Pneumonia [Recovered/Resolved]
  - Asthenia [Recovered/Resolved]
  - Pain [Recovered/Resolved]
